FAERS Safety Report 8086513-2 (Version None)
Quarter: 2012Q1

REPORT INFORMATION
  Report Type: 
  Country: None (occurrence: None)
  Receive Date: 20120128
  Receipt Date: 20110415
  Transmission Date: 20120608
  Serious: No
  Sender: FDA-Public Use
  Company Number: US-ABBOTT-11P-163-0719291-00

PATIENT
  Sex: Male
  Weight: 54.48 kg

DRUGS (1)
  1. HUMIRA [Suspect]
     Indication: CROHN'S DISEASE
     Dates: start: 20110207

REACTIONS (4)
  - DIZZINESS [None]
  - SENSATION OF PRESSURE [None]
  - UPPER-AIRWAY COUGH SYNDROME [None]
  - EAR DISCOMFORT [None]
